FAERS Safety Report 4909237-6 (Version None)
Quarter: 2006Q1

REPORT INFORMATION
  Report Type: 
  Country: None (occurrence: None)
  Receive Date: 20060208
  Receipt Date: 20060126
  Transmission Date: 20060701
  Serious: Yes (Other)
  Sender: FDA-Public Use
  Company Number: 2006015969

PATIENT
  Age: 61 Year
  Sex: Female
  Weight: 74.8435 kg

DRUGS (4)
  1. DIFLUCAN [Suspect]
     Indication: PRURITUS
     Dosage: 150 MG (150 MG)
  2. XANAX [Suspect]
     Indication: PRURITUS
     Dosage: 3 MG (3 MG)
  3. CORTISONE ACETATE [Concomitant]
  4. NORCO [Concomitant]

REACTIONS (11)
  - BURNING SENSATION [None]
  - CHAPPED LIPS [None]
  - DRUG HYPERSENSITIVITY [None]
  - HEART RATE INCREASED [None]
  - HYPERSENSITIVITY [None]
  - HYPERTENSION [None]
  - PALPITATIONS [None]
  - PANIC ATTACK [None]
  - PRURITUS [None]
  - TREATMENT NONCOMPLIANCE [None]
  - TREMOR [None]
